FAERS Safety Report 23741686 (Version 5)
Quarter: 2024Q2

REPORT INFORMATION
  Report Type: Spontaneous
  Country: TR (occurrence: TR)
  Receive Date: 20240415
  Receipt Date: 20240521
  Transmission Date: 20240716
  Serious: Yes (Other)
  Sender: FDA-Public Use
  Company Number: TR-ASTELLAS-2024US010893

PATIENT
  Age: 48 Year
  Sex: Male

DRUGS (17)
  1. PADCEV [Suspect]
     Active Substance: ENFORTUMAB VEDOTIN-EJFV
     Indication: Transitional cell carcinoma metastatic
     Dosage: 1.25 MG/KG, CYCLIC (80 MG) (ON DAY 1, 8 AND 15)
     Route: 042
     Dates: start: 20240131
  2. PADCEV [Suspect]
     Active Substance: ENFORTUMAB VEDOTIN-EJFV
     Dosage: 1.25 MG/KG, CYCLIC (ON DAY 1, 8 AND 15)
     Route: 042
     Dates: start: 20240229
  3. PADCEV [Suspect]
     Active Substance: ENFORTUMAB VEDOTIN-EJFV
     Dosage: 1.25 MG/KG, CYCLIC (ON DAY 1, 8 AND 15)
     Route: 042
     Dates: start: 20240321
  4. PADCEV [Suspect]
     Active Substance: ENFORTUMAB VEDOTIN-EJFV
     Dosage: 1.25 MG/KG, CYCLIC (ON DAY 1, 8 AND 15)
     Route: 042
     Dates: start: 20240422
  5. PADCEV [Suspect]
     Active Substance: ENFORTUMAB VEDOTIN-EJFV
     Dosage: 1.25 MG/KG, CYCLIC ((ON DAY 1, 8 AND 15) 1ST DAY OF 5TH CURE))
     Route: 042
     Dates: start: 20240513
  6. KEYTRUDA [Suspect]
     Active Substance: PEMBROLIZUMAB
     Indication: Bladder cancer
     Dosage: 200 MG, OTHER (ONCE ON DAY 1 AND DAY 8)
     Route: 042
     Dates: start: 20240131
  7. KEYTRUDA [Suspect]
     Active Substance: PEMBROLIZUMAB
     Dosage: 200 MG, OTHER (ONCE ON DAY 1 AND DAY 8)
     Route: 042
     Dates: start: 20240229
  8. KEYTRUDA [Suspect]
     Active Substance: PEMBROLIZUMAB
     Dosage: 200 MG, OTHER (ONCE ON DAY 1 AND DAY 8)
     Route: 042
     Dates: start: 20240321
  9. KEYTRUDA [Suspect]
     Active Substance: PEMBROLIZUMAB
     Dosage: 200 MG, OTHER (ONCE ON DAY 1 AND DAY 8)
     Route: 042
     Dates: start: 20240422
  10. PANTOPRAZOLE SODIUM [Concomitant]
     Active Substance: PANTOPRAZOLE SODIUM
     Indication: Product used for unknown indication
     Dosage: 40 MG, ONCE DAILY (1 PILL EVERY MORNING)
     Route: 065
  11. NEXIUM [Concomitant]
     Active Substance: ESOMEPRAZOLE MAGNESIUM
     Indication: Product used for unknown indication
     Route: 065
  12. NEURONTIN [Concomitant]
     Active Substance: GABAPENTIN
     Indication: Product used for unknown indication
     Dosage: HALF PILL, EVERY 12 HOURS
     Route: 065
  13. MORFIA [Concomitant]
     Indication: Product used for unknown indication
     Route: 065
  14. Bekunis [Concomitant]
     Indication: Product used for unknown indication
     Dosage: 1 DF (PILL), ONCE DAILY EVERY NIGHT BEFORE BED
     Route: 065
  15. HOMEOPATHICS [Concomitant]
     Active Substance: ARNICA MONTANA\CAUSTICUM\COMFREY ROOT\HOMEOPATHICS\LEDUM PALUSTRE TWIG\PSEUDOGNAPHALIUM OBTUSIFOLIUM
     Indication: Product used for unknown indication
     Route: 065
  16. BERBERINE [Concomitant]
     Active Substance: BERBERINE
     Indication: Product used for unknown indication
     Dosage: UNK UNK, TWICE DAILY
     Route: 065
  17. ELMIRON [Concomitant]
     Active Substance: PENTOSAN POLYSULFATE SODIUM
     Indication: Product used for unknown indication
     Dosage: UNK UNK, UNKNOWN FREQ.
     Route: 065

REACTIONS (9)
  - Malignant neoplasm progression [Unknown]
  - Dysphonia [Unknown]
  - Swelling [Recovered/Resolved]
  - Erythema [Recovered/Resolved]
  - Constipation [Recovering/Resolving]
  - Radiculopathy [Not Recovered/Not Resolved]
  - Muscle spasms [Not Recovered/Not Resolved]
  - Skin burning sensation [Unknown]
  - Therapy non-responder [Unknown]

NARRATIVE: CASE EVENT DATE: 20240201
